FAERS Safety Report 5973179-8 (Version None)
Quarter: 2008Q4

REPORT INFORMATION
  Report Type: 
  Country: None (occurrence: None)
  Receive Date: 20081201
  Receipt Date: 20081121
  Transmission Date: 20090506
  Serious: Yes (Hospitalization, Other)
  Sender: FDA-Public Use
  Company Number: PHHO2005IE13202

PATIENT
  Sex: Female
  Weight: 94.3 kg

DRUGS (23)
  1. STARLIX DJN+TAB [Suspect]
     Indication: GLUCOSE TOLERANCE IMPAIRED
     Dosage: LEVEL 1
     Dates: start: 20031119
  2. STARLIX DJN+TAB [Suspect]
     Dosage: LEVEL 2
  3. DIOVAN [Suspect]
     Indication: CARDIOVASCULAR DISORDER
     Dosage: LEVEL 1
     Dates: start: 20031119
  4. DIOVAN [Suspect]
     Dosage: LEVEL 2
  5. LEVOTHYROXINE SODIUM [Concomitant]
  6. TOLTERODINE TARTRATE [Concomitant]
  7. ROSUVASTATIN [Concomitant]
  8. OMACOR [Concomitant]
  9. LASIX [Concomitant]
  10. ESOMEPRAZOLE MAGNESIUM [Concomitant]
  11. ASPIRIN [Concomitant]
  12. ELTROXIN [Concomitant]
  13. AMITRIPTYLINE HCL [Concomitant]
  14. DETROL [Concomitant]
  15. ZOCOR [Concomitant]
  16. RISPERIDONE [Concomitant]
  17. SERTRALINE [Concomitant]
  18. NITROFURANTOIN [Concomitant]
  19. CITALOPRAM HYDROBROMIDE [Concomitant]
  20. TOLTERODINE [Concomitant]
  21. DIAZEPAM [Concomitant]
  22. FRUSEMIDE [Concomitant]
  23. TRAMADOL HCL [Concomitant]

REACTIONS (13)
  - ABDOMINAL PAIN [None]
  - ABDOMINAL PAIN UPPER [None]
  - CHOLECYSTECTOMY [None]
  - CHOLELITHIASIS [None]
  - CONSTIPATION [None]
  - DECREASED APPETITE [None]
  - GASTRITIS [None]
  - HIATUS HERNIA [None]
  - LEFT VENTRICULAR HYPERTROPHY [None]
  - LETHARGY [None]
  - MELAENA [None]
  - PANCREATITIS [None]
  - REFLUX OESOPHAGITIS [None]
